FAERS Safety Report 6401186-X (Version None)
Quarter: 2009Q4

REPORT INFORMATION
  Report Type: 
  Country: None (occurrence: None)
  Receive Date: 20091015
  Receipt Date: 20091002
  Transmission Date: 20100525
  Serious: No
  Sender: FDA-Public Use
  Company Number: US-ROCHE-647232

PATIENT
  Sex: Female
  Weight: 76.2 kg

DRUGS (4)
  1. PEGASYS [Suspect]
     Indication: HEPATITIS C
     Dosage: FORM: PRE-FILLED SYRINGE
     Route: 058
     Dates: start: 20090724, end: 20090911
  2. RIBAVIRIN (NON-ROCHE) [Suspect]
     Indication: HEPATITIS C
     Dosage: DIVIDED DOSES
     Route: 048
     Dates: start: 20090724
  3. NEXIUM [Concomitant]
     Dosage: ANOTHER INDICATION: ACID REFLUX
     Route: 048
     Dates: start: 20010101
  4. EXTRA STRENGTH TYLENOL [Concomitant]
     Dosage: FREQUENCY: UPTO 4X DAY
     Route: 048
     Dates: start: 20090724

REACTIONS (10)
  - AGGRESSION [None]
  - BACK PAIN [None]
  - DECREASED APPETITE [None]
  - FEELING ABNORMAL [None]
  - HYPERHIDROSIS [None]
  - LOSS OF CONSCIOUSNESS [None]
  - NAUSEA [None]
  - PAIN [None]
  - PARANOIA [None]
  - VULVOVAGINAL BURNING SENSATION [None]
